FAERS Safety Report 10551888 (Version 2)
Quarter: 2014Q4

REPORT INFORMATION
  Report Type: Spontaneous
  Country: US (occurrence: US)
  Receive Date: 20141029
  Receipt Date: 20141125
  Transmission Date: 20150529
  Serious: Yes (Life-Threatening, Hospitalization)
  Sender: FDA-Public Use
  Company Number: US-SA-2014SA143565

PATIENT
  Age: 28 Year
  Sex: Female

DRUGS (3)
  1. FERRLECIT [Suspect]
     Active Substance: SODIUM FERRIC GLUCONATE COMPLEX
     Indication: ANAEMIA
     Dosage: DOSE=250MG IN 500ML NS INFUSION RUN IN OVER 2 HOURS?FORM INFUSION?STRENGTH: 62,5 MG/5 ML
     Route: 065
     Dates: start: 20141003
  2. FERRLECIT [Suspect]
     Active Substance: SODIUM FERRIC GLUCONATE COMPLEX
     Indication: ANAEMIA
     Dosage: DOSE=125MG IN 500ML NS INFUSION RUN IN OVER 2 HOURS?FORM INFUSION?STRENGTH: 62,5 MG/5 ML
     Route: 065
     Dates: start: 20140919
  3. FERRLECIT [Suspect]
     Active Substance: SODIUM FERRIC GLUCONATE COMPLEX
     Indication: ANAEMIA
     Dosage: DOSE=125MG IN 500ML NS INFUSION RUN IN OVER 2 HOURS?FORM INFUSION?STRENGTH: 62,5 MG/5 ML
     Route: 065
     Dates: start: 20140926

REACTIONS (3)
  - Dizziness [Unknown]
  - Rash [Unknown]
  - Swollen tongue [Unknown]

NARRATIVE: CASE EVENT DATE: 20141003
